FAERS Safety Report 18534767 (Version 1)
Quarter: 2020Q4

REPORT INFORMATION
  Report Type: Spontaneous
  Country: US (occurrence: US)
  Receive Date: 20201123
  Receipt Date: 20201123
  Transmission Date: 20210114
  Serious: Yes (Death)
  Sender: FDA-Public Use
  Company Number: US-ROCHE-2718060

PATIENT
  Age: 56 Year
  Sex: Male

DRUGS (2)
  1. ACTIVASE [Suspect]
     Active Substance: ALTEPLASE
     Indication: COVID-19
     Dosage: 50MG ACTIVASE IN 250ML NORMAL SALINE OVER 3 HOURS ;ONGOING: NO
     Route: 042
     Dates: start: 202010, end: 202010
  2. HEPARIN [Concomitant]
     Active Substance: HEPARIN SODIUM
     Indication: COVID-19
     Dates: start: 202010, end: 202010

REACTIONS (3)
  - Intentional product use issue [Fatal]
  - Pneumothorax [Fatal]
  - Off label use [Fatal]

NARRATIVE: CASE EVENT DATE: 202010
